FAERS Safety Report 24395547 (Version 1)
Quarter: 2024Q4

REPORT INFORMATION
  Report Type: Spontaneous
  Country: FR (occurrence: FR)
  Receive Date: 20241004
  Receipt Date: 20241004
  Transmission Date: 20250115
  Serious: Yes (Hospitalization)
  Sender: SANOFI AVENTIS
  Company Number: None

PATIENT
  Age: 84 Year
  Sex: Male
  Weight: 84 kg

DRUGS (6)
  1. LOVENOX [Suspect]
     Active Substance: ENOXAPARIN SODIUM
     Indication: Cardiac valve prosthesis user
     Dosage: 2 DF, BID,
     Route: 058
     Dates: end: 20190429
  2. LOPERAMIDE HYDROCHLORIDE [Concomitant]
     Active Substance: LOPERAMIDE HYDROCHLORIDE
     Indication: Diarrhoea
     Dosage: 3 DF, QD, ONE TABLES IN THE MORNING / AT NOON / IN THE EVENING IF NEEDED
     Route: 048
  3. ALFUZOSIN [Concomitant]
     Active Substance: ALFUZOSIN
     Indication: Benign prostatic hyperplasia
     Dosage: 1 DF, QD
     Route: 048
  4. CHOLECALCIFEROL [Concomitant]
     Active Substance: CHOLECALCIFEROL
     Indication: Hypovitaminosis
     Dosage: ONE AMPULE EVERY THREE MONTHS
     Route: 048
  5. MIANSERIN HYDROCHLORIDE [Concomitant]
     Active Substance: MIANSERIN HYDROCHLORIDE
     Indication: Depression
     Dosage: ONE TABLET IN THE EVENING (30 MG)
     Route: 048
  6. DOLIPRANE [Concomitant]
     Active Substance: ACETAMINOPHEN
     Indication: Pain
     Dosage: ONE EVERY SIX HOURS IF NEEDED
     Route: 048

REACTIONS (2)
  - Haematuria [Recovered/Resolved]
  - Normocytic anaemia [Recovered/Resolved]

NARRATIVE: CASE EVENT DATE: 20190429
